FAERS Safety Report 13093577 (Version 1)
Quarter: 2017Q1

REPORT INFORMATION
  Report Type: Spontaneous
  Country: CN (occurrence: CN)
  Receive Date: 20170106
  Receipt Date: 20170106
  Transmission Date: 20170428
  Serious: Yes (Other)
  Sender: FDA-Public Use
  Company Number: CN-JNJFOC-20170102249

PATIENT
  Age: 28 Year
  Sex: Female

DRUGS (3)
  1. INVEGA [Suspect]
     Active Substance: PALIPERIDONE
     Indication: SCHIZOPHRENIA
     Dosage: 3MG*7
     Route: 048
     Dates: start: 20161225
  2. INVEGA [Suspect]
     Active Substance: PALIPERIDONE
     Indication: SCHIZOPHRENIA
     Dosage: 3MG + 6MG
     Route: 048
     Dates: start: 20161230
  3. INVEGA [Suspect]
     Active Substance: PALIPERIDONE
     Indication: SCHIZOPHRENIA
     Dosage: 6MG*7
     Route: 048
     Dates: start: 20161220

REACTIONS (1)
  - Ileus [Unknown]
